FAERS Safety Report 8504211-5 (Version None)
Quarter: 2012Q2

REPORT INFORMATION
  Report Type: 
  Country: None (occurrence: None)
  Receive Date: 20120405
  Receipt Date: 20101105
  Transmission Date: 20120825
  Serious: Yes (Other)
  Sender: FDA-Public Use
  Company Number: PHHY2010US70413

PATIENT
  Age: 72 Year
  Sex: Female
  Weight: 69 kg

DRUGS (10)
  1. LOPRESSOR [Concomitant]
  2. LEVOTHYROXINE SODIUM [Concomitant]
  3. NUMALOG [Concomitant]
  4. LEVOTHROID [Concomitant]
  5. PROZAC [Concomitant]
  6. COZAAR [Concomitant]
  7. HUMALOG [Concomitant]
  8. LANTUS [Concomitant]
  9. RECLAST [Suspect]
     Indication: OSTEOPOROSIS
     Dosage: 5MG, INFUSION
     Dates: start: 20100625
  10. RECLAST [Suspect]
     Indication: OSTEOPOROSIS
     Dosage: 5MG, INFUSION
     Dates: start: 20100402

REACTIONS (2)
  - PAIN [None]
  - BONE PAIN [None]
